FAERS Safety Report 5144797-4 (Version None)
Quarter: 2006Q4

REPORT INFORMATION
  Report Type: 
  Country: None (occurrence: None)
  Receive Date: 20061107
  Receipt Date: 20061027
  Transmission Date: 20070319
  Serious: Yes (Life-Threatening, Other)
  Sender: FDA-Public Use
  Company Number: JP-JNJFOC-20050701161

PATIENT
  Sex: Male

DRUGS (1)
  1. LEUSTATIN [Suspect]
     Indication: HAIRY CELL LEUKAEMIA

REACTIONS (8)
  - ALANINE AMINOTRANSFERASE INCREASED [None]
  - ANAEMIA [None]
  - EXTRAVASCULAR HAEMOLYSIS [None]
  - FEBRILE NEUTROPENIA [None]
  - INFECTION [None]
  - LEUKOPENIA [None]
  - PLATELET COUNT DECREASED [None]
  - POLYCYTHAEMIA VERA [None]
